FAERS Safety Report 4806351-0 (Version None)
Quarter: 2005Q4

REPORT INFORMATION
  Report Type: 
  Country: None (occurrence: None)
  Receive Date: 20051021
  Receipt Date: 20051010
  Transmission Date: 20060501
  Serious: Yes (Death, Hospitalization)
  Sender: FDA-Public Use
  Company Number: FR-ROCHE-420606

PATIENT
  Age: 66 Year
  Sex: Female

DRUGS (3)
  1. CAPECITABINE [Suspect]
     Indication: BREAST CANCER
     Route: 048
     Dates: start: 20050601, end: 20050614
  2. KETOPROFEN [Suspect]
     Indication: DRUG USE FOR UNKNOWN INDICATION
     Dosage: DOUBLE DOSE FOR 5 DAYS.
     Route: 065
     Dates: start: 20050515, end: 20050622
  3. CLONAZEPAM [Concomitant]
     Dates: start: 20050115, end: 20050622

REACTIONS (3)
  - MUCOSAL INFLAMMATION [None]
  - OVERDOSE [None]
  - RENAL FAILURE [None]
